FAERS Safety Report 6218716-3 (Version None)
Quarter: 2009Q2

REPORT INFORMATION
  Report Type: 
  Country: None (occurrence: None)
  Receive Date: 20090608
  Receipt Date: 20090527
  Transmission Date: 20091009
  Serious: Yes (Hospitalization)
  Sender: FDA-Public Use
  Company Number: DE-TEVA-196493ISR

PATIENT
  Age: 68 Year
  Sex: Female
  Weight: 49 kg

DRUGS (6)
  1. IRINOTECAN HCL [Suspect]
     Indication: COLORECTAL CANCER METASTATIC
     Route: 042
     Dates: start: 20090305, end: 20090416
  2. FLUOROURACIL [Suspect]
     Indication: COLORECTAL CANCER METASTATIC
     Route: 042
     Dates: start: 20090305, end: 20090416
  3. FOLINIC ACID [Suspect]
     Indication: COLORECTAL CANCER METASTATIC
     Route: 042
     Dates: start: 20090305, end: 20090416
  4. CETUXIMAB [Suspect]
     Indication: COLORECTAL CANCER METASTATIC
     Route: 042
     Dates: start: 20090305, end: 20090506
  5. TORSEMIDE [Concomitant]
     Dates: start: 20090416
  6. HYDROCHLOROTHIAZIDE [Concomitant]
     Route: 048
     Dates: start: 20090506

REACTIONS (1)
  - ERYSIPELAS [None]
